FAERS Safety Report 5691133-0 (Version None)
Quarter: 2008Q2

REPORT INFORMATION
  Report Type: 
  Country: None (occurrence: None)
  Receive Date: 20080401
  Receipt Date: 20080317
  Transmission Date: 20081010
  Serious: Yes (Hospitalization)
  Sender: FDA-Public Use
  Company Number: CA-GENENTECH-219701

PATIENT
  Sex: Male
  Weight: 69.887 kg

DRUGS (6)
  1. BEVACIZUMAB [Suspect]
     Indication: COLON CANCER
     Dosage: 525 MG, Q3W
     Route: 042
     Dates: start: 20050816
  2. CAPECITABINE [Suspect]
     Indication: COLON CANCER
     Dosage: 1800 MG, Q2W/X3
     Route: 048
     Dates: start: 20050816
  3. OXALIPLATIN [Suspect]
     Indication: COLON CANCER
     Dosage: 172.5 MG, Q3W
     Route: 042
     Dates: start: 20050816
  4. IRON [Concomitant]
     Indication: DRUG USE FOR UNKNOWN INDICATION
     Dates: start: 20050715
  5. COLACE [Concomitant]
     Indication: DRUG USE FOR UNKNOWN INDICATION
     Dates: start: 20050715
  6. SENOKOT [Concomitant]
     Indication: DRUG USE FOR UNKNOWN INDICATION

REACTIONS (1)
  - ABSCESS [None]
